FAERS Safety Report 19972910 (Version 2)
Quarter: 2021Q4

REPORT INFORMATION
  Report Type: Report from Study
  Country: None (occurrence: US)
  Receive Date: 20211019
  Receipt Date: 20211025
  Transmission Date: 20220303
  Serious: Yes (Life-Threatening, Other)
  Sender: FDA-Public Use
  Company Number: US-ABBVIE-21K-163-4117998-00

PATIENT
  Age: 74 Year
  Sex: Female
  Weight: 60.38 kg

DRUGS (9)
  1. SKYRIZI [Suspect]
     Active Substance: RISANKIZUMAB-RZAA
     Indication: Psoriasis
     Route: 058
  2. SKYRIZI [Suspect]
     Active Substance: RISANKIZUMAB-RZAA
     Indication: Psoriasis
     Route: 058
     Dates: start: 2020
  3. FORTEO [Concomitant]
     Active Substance: TERIPARATIDE
     Indication: Osteoporosis
  4. AMLODIPINE [Concomitant]
     Active Substance: AMLODIPINE BESYLATE
     Indication: Hypertension
  5. CHOLECALCIFEROL [Concomitant]
     Active Substance: CHOLECALCIFEROL
     Indication: Vitamin supplementation
  6. COVID-19 VACCINE [Concomitant]
     Indication: COVID-19 immunisation
     Route: 030
     Dates: start: 20210120, end: 20210120
  7. COVID-19 VACCINE [Concomitant]
     Route: 030
     Dates: start: 20210213, end: 20210213
  8. COVID-19 VACCINE [Concomitant]
     Route: 030
     Dates: start: 20210928, end: 20210928
  9. PARAFFIN [Concomitant]
     Active Substance: PARAFFIN
     Indication: Product used for unknown indication

REACTIONS (2)
  - Basal cell carcinoma [Recovered/Resolved]
  - Rash [Unknown]

NARRATIVE: CASE EVENT DATE: 20210901
